FAERS Safety Report 26212425 (Version 1)
Quarter: 2025Q4

REPORT INFORMATION
  Report Type: Spontaneous
  Country: GB (occurrence: GB)
  Receive Date: 20251230
  Receipt Date: 20251230
  Transmission Date: 20260117
  Serious: Yes (Other)
  Sender: ACCORD
  Company Number: GB-MLMSERVICE-20251215-PI749757-00101-1

PATIENT
  Age: 35 Year
  Sex: Female

DRUGS (1)
  1. CISPLATIN [Suspect]
     Active Substance: CISPLATIN
     Indication: Osteosarcoma

REACTIONS (2)
  - Cardiomyopathy [Unknown]
  - Off label use [Unknown]
